FAERS Safety Report 8726870 (Version 2)
Quarter: 2015Q3

REPORT INFORMATION
  Report Type: Report from Study
  Country: US (occurrence: US)
  Receive Date: 20120816
  Receipt Date: 20150803
  Transmission Date: 20151125
  Serious: Yes (Hospitalization)
  Sender: FDA-Public Use
  Company Number: US-ROCHE-1099912

PATIENT
  Age: 60 Year
  Sex: Male

DRUGS (3)
  1. DIGOXIN. [Concomitant]
     Active Substance: DIGOXIN
  2. ACTIVASE [Suspect]
     Active Substance: ALTEPLASE
     Indication: ACUTE MYOCARDIAL INFARCTION
     Route: 065
  3. CARDIZEM [Concomitant]
     Active Substance: DILTIAZEM HYDROCHLORIDE

REACTIONS (4)
  - Atrial flutter [Unknown]
  - Pleuritic pain [Unknown]
  - Hypokalaemia [Unknown]
  - Hypotension [Unknown]

NARRATIVE: CASE EVENT DATE: 19891008
